FAERS Safety Report 16921120 (Version 3)
Quarter: 2020Q2

REPORT INFORMATION
  Report Type: Spontaneous
  Country: IT (occurrence: IT)
  Receive Date: 20191015
  Receipt Date: 20200430
  Transmission Date: 20200713
  Serious: Yes (Other)
  Sender: FDA-Public Use
  Company Number: NVSC2019IT002609

PATIENT
  Age: 67 Year
  Sex: Female

DRUGS (3)
  1. ETANERCEPT [Suspect]
     Active Substance: ETANERCEPT
     Indication: RHEUMATOID ARTHRITIS
     Dosage: UNK
     Route: 065
  2. ETANERCEPT [Suspect]
     Active Substance: ETANERCEPT
     Dosage: UNK
     Route: 065
  3. ETANERCEPT [Suspect]
     Active Substance: ETANERCEPT
     Dosage: UNK
     Route: 065

REACTIONS (10)
  - Henoch-Schonlein purpura [Recovered/Resolved]
  - Abdominal pain [Unknown]
  - Gastrointestinal haemorrhage [Unknown]
  - Renal vasculitis [Recovered/Resolved]
  - Haematuria [Recovering/Resolving]
  - Proteinuria [Recovering/Resolving]
  - Purpura [Unknown]
  - Glomerulonephritis [Recovering/Resolving]
  - Necrosis [Unknown]
  - Vasculitis gastrointestinal [Recovered/Resolved]
